FAERS Safety Report 21896001 (Version 1)
Quarter: 2023Q1

REPORT INFORMATION
  Report Type: Report from Study
  Country: US (occurrence: US)
  Receive Date: 20230123
  Receipt Date: 20230123
  Transmission Date: 20230418
  Serious: Yes (Hospitalization, Other)
  Sender: FDA-Public Use
  Company Number: US-TAKEDA-2023TUS006858

PATIENT
  Sex: Female
  Weight: 74.7 kg

DRUGS (1)
  1. VON WILLEBRAND FACTOR HUMAN [Suspect]
     Active Substance: VON WILLEBRAND FACTOR HUMAN
     Indication: Von Willebrand^s disease
     Dosage: 4000 INTERNATIONAL UNIT
     Route: 065
     Dates: start: 20210929

REACTIONS (7)
  - Dyspnoea [Unknown]
  - Chronic obstructive pulmonary disease [Unknown]
  - Hypercapnia [Unknown]
  - Respiratory acidosis [Unknown]
  - Decreased appetite [Unknown]
  - Asthenia [Unknown]
  - Cough [Unknown]
